FAERS Safety Report 17766361 (Version 2)
Quarter: 2024Q4

REPORT INFORMATION
  Report Type: Spontaneous
  Country: IT (occurrence: IT)
  Receive Date: 20200511
  Receipt Date: 20241205
  Transmission Date: 20250114
  Serious: Yes (Death, Life-Threatening, Hospitalization, Other)
  Sender: VIIV
  Company Number: IT-EMA-DD-20200312-PRABHAKAR_D-151903

PATIENT

DRUGS (19)
  1. LAMIVUDINE [Suspect]
     Active Substance: LAMIVUDINE
     Indication: Product used for unknown indication
     Dosage: 600 MG, QD (200 MG, TID)
     Route: 065
  2. LAMIVUDINE [Suspect]
     Active Substance: LAMIVUDINE
     Dosage: 300 MG, QD (100 MG THREE TIMES A DAY)
     Route: 065
  3. GANCICLOVIR [Suspect]
     Active Substance: GANCICLOVIR
     Indication: Cytomegalovirus hepatitis
     Dosage: 350 MG, BID
     Route: 042
     Dates: start: 2018
  4. RITUXIMAB [Suspect]
     Active Substance: RITUXIMAB
     Indication: Chronic inflammatory demyelinating polyradiculoneuropathy
     Dosage: 1000 MG (1000 MG (2 DOSES)FIRST DOSE AND THE MAN RECEIVED SECOND DOSE TWO WEEKS LATER)
     Route: 065
     Dates: start: 201806
  5. RITUXIMAB [Suspect]
     Active Substance: RITUXIMAB
     Dosage: 1000 MG (SECOND DOSE AFTER 2 WEEKS)
     Route: 065
     Dates: start: 2018
  6. CANDESARTAN [Suspect]
     Active Substance: CANDESARTAN
     Indication: Hypertension
     Dosage: 8 MG, QD
     Route: 048
  7. NALOXONE HYDROCHLORIDE\OXYCODONE HYDROCHLORIDE [Suspect]
     Active Substance: NALOXONE HYDROCHLORIDE\OXYCODONE HYDROCHLORIDE
     Indication: Chronic inflammatory demyelinating polyradiculoneuropathy
     Dosage: UNK, BID (OXYCODONE/NALOXONE 10/5MG TWICE DAILY)
     Route: 048
     Dates: end: 2018
  8. PREDNISONE [Suspect]
     Active Substance: PREDNISONE
     Indication: Chronic inflammatory demyelinating polyradiculoneuropathy
     Dosage: 50 MG, QD
     Route: 048
  9. HUMAN IMMUNOGLOBULIN G [Suspect]
     Active Substance: HUMAN IMMUNOGLOBULIN G
     Indication: Chronic inflammatory demyelinating polyradiculoneuropathy
     Dosage: UNK
     Route: 042
  10. LEVOTHYROXINE [Concomitant]
     Active Substance: LEVOTHYROXINE
     Indication: Chronic inflammatory demyelinating polyradiculoneuropathy
     Dosage: 75 ?G, QD
     Route: 048
  11. LEVOTHYROXINE [Concomitant]
     Active Substance: LEVOTHYROXINE
     Dosage: 75 ?G, QD
     Route: 048
  12. RANITIDINE [Concomitant]
     Active Substance: RANITIDINE
     Indication: Product used for unknown indication
     Dosage: 300 MG, QD
     Route: 048
  13. ALLOPURINOL [Concomitant]
     Active Substance: ALLOPURINOL
     Indication: Chronic inflammatory demyelinating polyradiculoneuropathy
     Dosage: 300 MG, QD
     Route: 048
  14. NALOXONE [Concomitant]
     Active Substance: NALOXONE
     Indication: Chronic inflammatory demyelinating polyradiculoneuropathy
     Dosage: 5 MG
     Route: 065
  15. OXYCODONE [Concomitant]
     Active Substance: OXYCODONE
     Indication: Chronic inflammatory demyelinating polyradiculoneuropathy
     Dosage: 10 MG
     Route: 065
  16. TENOFOVIR [Concomitant]
     Active Substance: TENOFOVIR
     Indication: Product used for unknown indication
     Dosage: 245 MG, QD
     Route: 065
  17. ALENDRONIC ACID [Concomitant]
     Active Substance: ALENDRONIC ACID
     Indication: Chronic inflammatory demyelinating polyradiculoneuropathy
     Dosage: 70 MG, WE
     Route: 048
  18. ALENDRONIC ACID [Concomitant]
     Active Substance: ALENDRONIC ACID
     Dosage: 70 MG, WE
     Route: 048
  19. PIPERACILLIN SODIUM\TAZOBACTAM SODIUM [Concomitant]
     Active Substance: PIPERACILLIN SODIUM\TAZOBACTAM SODIUM
     Indication: Antibiotic therapy
     Dosage: 4.5 G, TID
     Route: 042
     Dates: start: 2018

REACTIONS (17)
  - Acute on chronic liver failure [Fatal]
  - Hepatitis B reactivation [Fatal]
  - Acute hepatic failure [Fatal]
  - Multiple organ dysfunction syndrome [Fatal]
  - Metabolic acidosis [Fatal]
  - Hepatic failure [Fatal]
  - Hepatic encephalopathy [Fatal]
  - Cholecystitis [Fatal]
  - International normalised ratio increased [Unknown]
  - Nausea [Recovering/Resolving]
  - Jaundice [Recovering/Resolving]
  - Ascites [Unknown]
  - Diarrhoea [Recovering/Resolving]
  - Hepatic cirrhosis [Unknown]
  - Chromaturia [Recovering/Resolving]
  - Blood lactic acid increased [Unknown]
  - Product use in unapproved indication [Unknown]

NARRATIVE: CASE EVENT DATE: 20180901
